FAERS Safety Report 4519042-0 (Version None)
Quarter: 2004Q4

REPORT INFORMATION
  Report Type: 
  Country: None (occurrence: None)
  Receive Date: 20041201
  Receipt Date: 20041125
  Transmission Date: 20050328
  Serious: Yes (Death)
  Sender: FDA-Public Use
  Company Number: DEU-2004-0001129

PATIENT
  Age: 24 Year
  Sex: Male

DRUGS (1)
  1. MST CONTINUS (MORPHINE SULFATE) CR CAPSULE DAILY [Suspect]
     Indication: OFF LABEL USE
     Dosage: INTRAVENOUS
     Route: 042
     Dates: start: 20041123

REACTIONS (3)
  - DRUG ABUSER [None]
  - EMBOLISM [None]
  - OVERDOSE [None]
